FAERS Safety Report 15593676 (Version 3)
Quarter: 2019Q2

REPORT INFORMATION
  Report Type: Spontaneous
  Country: US (occurrence: US)
  Receive Date: 20181106
  Receipt Date: 20190417
  Transmission Date: 20190711
  Serious: No
  Sender: FDA-Public Use
  Company Number: US-SHIONOGI, INC-2018001714

PATIENT
  Age: 66 Year
  Sex: Female
  Weight: 59.41 kg

DRUGS (8)
  1. SYMPROIC [Suspect]
     Active Substance: NALDEMEDINE
     Dosage: TAKES TWO TABLETS BY MISTAKE
     Route: 065
     Dates: start: 2018
  2. SYMPROIC [Suspect]
     Active Substance: NALDEMEDINE
     Dosage: 2 TABLETS A DAY
     Route: 048
     Dates: start: 2018, end: 20180914
  3. OXYCODONE [Concomitant]
     Active Substance: OXYCODONE
     Indication: CHEST PAIN
     Dosage: 15 MG, 6 HOUR
     Route: 048
  4. RELISTOR [Concomitant]
     Active Substance: METHYLNALTREXONE BROMIDE
     Indication: CONSTIPATION
     Dosage: 12 MG, QD
     Route: 058
  5. SYMPROIC [Suspect]
     Active Substance: NALDEMEDINE
     Dosage: 1 TABLET A DAY
     Dates: start: 201810
  6. METAMUCIL [Concomitant]
     Active Substance: PLANTAGO SEED
     Indication: PRODUCT USED FOR UNKNOWN INDICATION
     Dosage: UNK
     Route: 065
  7. SYMPROIC [Suspect]
     Active Substance: NALDEMEDINE
     Indication: CONSTIPATION
     Dosage: 1 TABLET A DAY
     Route: 048
     Dates: start: 20180619, end: 2018
  8. BACLOFEN. [Concomitant]
     Active Substance: BACLOFEN
     Indication: PRODUCT USED FOR UNKNOWN INDICATION
     Dosage: PUMP
     Route: 065

REACTIONS (4)
  - Rectal tenesmus [Unknown]
  - Intentional product use issue [Unknown]
  - Drug ineffective [Unknown]
  - Incorrect dose administered [Unknown]

NARRATIVE: CASE EVENT DATE: 2018
